FAERS Safety Report 12824073 (Version 1)
Quarter: 2016Q4

REPORT INFORMATION
  Report Type: Spontaneous
  Country: US (occurrence: US)
  Receive Date: 20161007
  Receipt Date: 20161007
  Transmission Date: 20170207
  Serious: No
  Sender: FDA-Public Use
  Company Number: None

PATIENT
  Age: 19 Year
  Sex: Female
  Weight: 116.68 kg

DRUGS (2)
  1. TUBERSOL [Suspect]
     Active Substance: TUBERCULIN PURIFIED PROTEIN DERIVATIVE
     Indication: PROPHYLAXIS
     Dosage: 0.1 CC ONCE INTRADERMAL
     Route: 023
     Dates: start: 20160920
  2. TRINTELLIX [Suspect]
     Active Substance: VORTIOXETINE HYDROBROMIDE
     Indication: DEPRESSION
     Route: 048
     Dates: start: 20160912

REACTIONS (4)
  - Rash [None]
  - Nausea [None]
  - Rash pruritic [None]
  - Fatigue [None]

NARRATIVE: CASE EVENT DATE: 20160921
